FAERS Safety Report 8081746-3 (Version None)
Quarter: 2012Q1

REPORT INFORMATION
  Report Type: 
  Country: None (occurrence: None)
  Receive Date: 20120130
  Receipt Date: 20120124
  Transmission Date: 20120608
  Serious: Yes (Death, Hospitalization, Other)
  Sender: FDA-Public Use
  Company Number: US-ELI_LILLY_AND_COMPANY-US201201007220

PATIENT
  Sex: Male

DRUGS (1)
  1. ALIMTA [Suspect]
     Indication: HEAD AND NECK CANCER
     Dosage: 890 MG, UNK
     Dates: start: 20110114

REACTIONS (4)
  - DEATH [None]
  - HOSPICE CARE [None]
  - OFF LABEL USE [None]
  - ABDOMINAL PAIN [None]
